FAERS Safety Report 8359243-7 (Version None)
Quarter: 2012Q2

REPORT INFORMATION
  Report Type: 
  Country: None (occurrence: None)
  Receive Date: 20120514
  Receipt Date: 20120514
  Transmission Date: 20120825
  Serious: Yes (Other)
  Sender: FDA-Public Use
  Company Number: None

PATIENT
  Age: 60 Year
  Sex: Male
  Weight: 72.5755 kg

DRUGS (2)
  1. MOUTH WASH [Concomitant]
  2. CREST PRO HEALTH CETYLPYRIDIUM 0.07% CREST [Suspect]
     Dosage: 30 CC ONCE A DAY BUCCAL
     Route: 002
     Dates: start: 20110101, end: 20120310

REACTIONS (1)
  - VIIITH NERVE LESION [None]
